FAERS Safety Report 22047215 (Version 4)
Quarter: 2023Q2

REPORT INFORMATION
  Report Type: Spontaneous
  Country: US (occurrence: US)
  Receive Date: 20230301
  Receipt Date: 20230424
  Transmission Date: 20230721
  Serious: No
  Sender: FDA-Public Use
  Company Number: US-PFIZER INC-PV202200071834

PATIENT
  Age: 12 Year
  Sex: Female
  Weight: 28.58 kg

DRUGS (3)
  1. GENOTROPIN [Suspect]
     Active Substance: SOMATROPIN
     Dosage: 1.2 MG, DAILY (1.2 MG, EVERY NIGHT)
     Dates: start: 202209
  2. GENOTROPIN [Suspect]
     Active Substance: SOMATROPIN
     Dosage: UNK
  3. LUPRON [Concomitant]
     Active Substance: LEUPROLIDE ACETATE
     Indication: Precocious puberty
     Dosage: 30 MG, EVERY 3 MONTHS (SHOT OF HER BOOSTER, EVERY 12 WEEKS)
     Dates: start: 202006

REACTIONS (6)
  - Device physical property issue [Unknown]
  - Device leakage [Unknown]
  - Needle issue [Unknown]
  - Drug dose omission by device [Unknown]
  - Product storage error [Unknown]
  - Poor quality device used [Unknown]

NARRATIVE: CASE EVENT DATE: 20230208
